FAERS Safety Report 7379506-1 (Version None)
Quarter: 2011Q1

REPORT INFORMATION
  Report Type: 
  Country: None (occurrence: None)
  Receive Date: 20110329
  Receipt Date: 20110324
  Transmission Date: 20110831
  Serious: No
  Sender: FDA-Public Use
  Company Number: US-BIOGENIDEC-2011BI011148

PATIENT
  Age: 45 Year
  Sex: Female

DRUGS (2)
  1. REQUIP [Concomitant]
     Indication: RESTLESS LEGS SYNDROME
  2. TYSABRI [Suspect]
     Indication: MULTIPLE SCLEROSIS
     Route: 042
     Dates: start: 20110131

REACTIONS (1)
  - RESTLESS LEGS SYNDROME [None]
